FAERS Safety Report 18283599 (Version 1)
Quarter: 2020Q3

REPORT INFORMATION
  Report Type: Spontaneous
  Country: CN (occurrence: CN)
  Receive Date: 20200918
  Receipt Date: 20200918
  Transmission Date: 20201103
  Serious: Yes (Other)
  Sender: FDA-Public Use
  Company Number: CN-ELI_LILLY_AND_COMPANY-CN202009005816

PATIENT
  Age: 69 Year
  Sex: Male
  Weight: 50 kg

DRUGS (4)
  1. ALIMTA [Suspect]
     Active Substance: PEMETREXED DISODIUM
     Indication: LUNG CANCER METASTATIC
     Dosage: 0.85 MG, SINGLE
     Route: 041
     Dates: start: 20200724, end: 20200724
  2. NUO XIN [Suspect]
     Active Substance: CISPLATIN
     Indication: LUNG CANCER METASTATIC
     Dosage: 30 MG, DAILY
     Route: 041
     Dates: start: 20200724, end: 20200727
  3. SODIUM CHLORIDE 0.9% [Concomitant]
     Active Substance: SODIUM CHLORIDE
     Indication: MEDICATION DILUTION
     Dosage: 500 ML, DAILY
     Route: 041
     Dates: start: 20200724, end: 20200727
  4. SODIUM CHLORIDE 0.9% [Concomitant]
     Active Substance: SODIUM CHLORIDE
     Dosage: 250 ML, SINGLE
     Route: 041
     Dates: start: 20200724, end: 20200724

REACTIONS (4)
  - Thrombocytopenia [Recovering/Resolving]
  - Leukopenia [Recovering/Resolving]
  - Bone marrow failure [Recovering/Resolving]
  - Granulocytopenia [Recovering/Resolving]

NARRATIVE: CASE EVENT DATE: 20200802
